FAERS Safety Report 9900123 (Version 3)
Quarter: 2015Q3

REPORT INFORMATION
  Report Type: Spontaneous
  Country: JP (occurrence: JP)
  Receive Date: 20140214
  Receipt Date: 20150814
  Transmission Date: 20151125
  Serious: Yes (Hospitalization, Other)
  Sender: FDA-Public Use
  Company Number: JP-PFIZER INC-2014041328

PATIENT
  Age: 72 Year
  Sex: Female
  Weight: 62 kg

DRUGS (18)
  1. GOODMIN [Concomitant]
     Active Substance: BROTIZOLAM
     Dosage: UNK
     Dates: start: 20140131
  2. AMINOLEBAN [Concomitant]
     Active Substance: AMINO ACIDS
     Dosage: UNK
     Dates: start: 20140206, end: 20140206
  3. LEVOFOLINATE YAKULT [Suspect]
     Active Substance: LEVOLEUCOVORIN CALCIUM
     Indication: PANCREATIC CARCINOMA
     Dosage: 336 MG, 1X/DAY (336 MG/BODY (199.8 MG/M2))
     Route: 041
     Dates: start: 20140204, end: 20140204
  4. MAGLAX [Concomitant]
     Active Substance: MAGNESIUM OXIDE
     Dosage: UNK
     Dates: start: 20140131
  5. TRYPTANOL [Concomitant]
     Active Substance: AMITRIPTYLINE
     Dosage: UNK
     Dates: start: 20140131
  6. NEXIUM [Concomitant]
     Active Substance: ESOMEPRAZOLE MAGNESIUM
     Dosage: UNK
     Dates: start: 20140131
  7. DECADRON [Concomitant]
     Active Substance: DEXAMETHASONE
     Dosage: UNK
     Dates: start: 20140205, end: 20140206
  8. LOXONIN [Concomitant]
     Active Substance: LOXOPROFEN SODIUM
     Dosage: UNK
     Dates: start: 20140131
  9. SOLITA-T 3G [Concomitant]
     Dosage: UNK
     Dates: start: 20140206, end: 20140206
  10. CAMPTO [Suspect]
     Active Substance: IRINOTECAN
     Indication: PANCREATIC CARCINOMA
     Dosage: 252 MG, 1X/DAY (252 MG/BODY (149.8 MG/M2))
     Route: 041
     Dates: start: 20140204, end: 20140204
  11. 5-FU /00098801/ [Suspect]
     Active Substance: FLUOROURACIL
     Indication: PANCREATIC CARCINOMA
     Dosage: 4032 MG, CYCLIC, ONCE IN 2 DAYS (4032 MG/BODY/D1-2 (2397.1 MG/M2/D1-2))
     Route: 041
     Dates: start: 20140204, end: 20140204
  12. BLOPRESS [Concomitant]
     Active Substance: CANDESARTAN CILEXETIL
     Dosage: UNK
     Dates: start: 20140131
  13. ALOXI [Concomitant]
     Active Substance: PALONOSETRON HYDROCHLORIDE
     Dosage: UNK
     Dates: start: 20140204, end: 20140204
  14. ZETIA [Concomitant]
     Active Substance: EZETIMIBE
     Dosage: UNK
     Dates: start: 20140131
  15. VEEN 3 G [Concomitant]
     Dosage: UNK
     Dates: start: 20140206, end: 20140206
  16. ELPLAT [Suspect]
     Active Substance: OXALIPLATIN
     Indication: PANCREATIC CARCINOMA
     Dosage: 142.8 MG, 1X/DAY (142.8 MG/BODY (84.9 MG/M2))
     Route: 041
     Dates: start: 20140204, end: 20140204
  17. AZELNIDIPINE [Concomitant]
     Active Substance: AZELNIDIPINE
     Dosage: UNK
     Dates: start: 20140131
  18. DECADRON [Concomitant]
     Active Substance: DEXAMETHASONE
     Dosage: UNK
     Dates: start: 20140204, end: 20140204

REACTIONS (3)
  - Hyperammonaemia [Recovered/Resolved]
  - Altered state of consciousness [Unknown]
  - Vomiting [Unknown]

NARRATIVE: CASE EVENT DATE: 20140206
